FAERS Safety Report 6925045-9 (Version None)
Quarter: 2010Q3

REPORT INFORMATION
  Report Type: 
  Country: None (occurrence: None)
  Receive Date: 20100810
  Receipt Date: 20100802
  Transmission Date: 20110219
  Serious: Yes (Other)
  Sender: FDA-Public Use
  Company Number: 20109107

PATIENT
  Age: 10 Year
  Sex: Male
  Weight: 19.2 kg

DRUGS (2)
  1. LIORESAL [Suspect]
     Indication: MUSCLE SPASTICITY
     Dosage: 400 MCG, DAILY, INTRATHECAL
     Route: 037
  2. DIAZEPAM [Concomitant]

REACTIONS (6)
  - AGITATION [None]
  - CEREBRAL INFARCTION [None]
  - CEREBRAL ISCHAEMIA [None]
  - DYSTONIA [None]
  - ENCEPHALOMALACIA [None]
  - HYPERTONIA [None]
